FAERS Safety Report 7984156-X (Version None)
Quarter: 2011Q4

REPORT INFORMATION
  Report Type: 
  Country: None (occurrence: None)
  Receive Date: 20111214
  Receipt Date: 20111207
  Transmission Date: 20120403
  Serious: Yes (Death, Hospitalization)
  Sender: FDA-Public Use
  Company Number: 2011MA017478

PATIENT
  Age: 73 Year
  Sex: Female

DRUGS (3)
  1. OLANZAPINE [Concomitant]
  2. MIDAZOLAM [Concomitant]
  3. CITALOPRAM HYDROBROMIDE [Suspect]
     Dosage: 40 MG

REACTIONS (2)
  - CARDIAC ARREST [None]
  - HALLUCINATION [None]
